FAERS Safety Report 24346897 (Version 3)
Quarter: 2024Q4

REPORT INFORMATION
  Report Type: Spontaneous
  Country: TH (occurrence: TH)
  Receive Date: 20240921
  Receipt Date: 20241019
  Transmission Date: 20250115
  Serious: Yes (Hospitalization)
  Sender: ACCORD
  Company Number: TH-MLMSERVICE-20240903-PI181677-00218-1

PATIENT
  Age: 37 Year
  Sex: Female

DRUGS (6)
  1. METHOTREXATE [Suspect]
     Active Substance: METHOTREXATE
     Indication: Spondylitis
     Route: 048
     Dates: start: 20201123
  2. SULFASALAZINE [Concomitant]
     Active Substance: SULFASALAZINE
     Indication: Spondylitis
     Dates: start: 20210301
  3. INDOMETHACIN [Concomitant]
     Active Substance: INDOMETHACIN
     Indication: Spondylitis
     Dates: start: 20210301
  4. SULFASALAZINE [Concomitant]
     Active Substance: SULFASALAZINE
     Indication: Spondylitis
     Dates: start: 20201123
  5. INDOMETHACIN [Concomitant]
     Active Substance: INDOMETHACIN
     Indication: Spondylitis
     Dates: start: 20201123
  6. METHOTREXATE [Suspect]
     Active Substance: METHOTREXATE
     Indication: Spondylitis
     Route: 048
     Dates: start: 20210301

REACTIONS (4)
  - COVID-19 pneumonia [Recovered/Resolved]
  - Breakthrough COVID-19 [Recovered/Resolved]
  - Vaccination failure [Recovered/Resolved]
  - Off label use [Unknown]

NARRATIVE: CASE EVENT DATE: 20211115
